FAERS Safety Report 5078374-0 (Version None)
Quarter: 2006Q3

REPORT INFORMATION
  Report Type: 
  Country: None (occurrence: None)
  Receive Date: 20060811
  Receipt Date: 20060719
  Transmission Date: 20061208
  Serious: Yes (Disabling)
  Sender: FDA-Public Use
  Company Number: JP-JPN-A200602713

PATIENT
  Age: 58 Year
  Sex: Male

DRUGS (14)
  1. ALKERAN [Suspect]
     Indication: STEM CELL TRANSPLANT
     Dosage: 150MG PER DAY
     Route: 042
     Dates: start: 20060712, end: 20060713
  2. BONALON [Concomitant]
     Route: 048
  3. TAKEPRON [Concomitant]
     Route: 048
  4. COMELIAN [Concomitant]
     Route: 048
  5. SLOW-K [Concomitant]
     Route: 048
  6. LASIX [Concomitant]
     Route: 065
  7. TORSEMIDE [Concomitant]
     Route: 048
  8. GLUFAST [Concomitant]
     Route: 048
  9. POLYMYXIN B SULFATE [Concomitant]
     Route: 065
  10. ITRACONAZOLE [Concomitant]
     Route: 048
  11. DIFLUCAN [Concomitant]
     Route: 065
  12. PREDONINE [Concomitant]
     Route: 065
  13. ALLOPURINOL [Concomitant]
     Route: 048
  14. PREDNISOLONE [Concomitant]
     Route: 065

REACTIONS (2)
  - DYSKINESIA [None]
  - MYOCLONUS [None]
